FAERS Safety Report 6617418-9 (Version None)
Quarter: 2010Q1

REPORT INFORMATION
  Report Type: 
  Country: None (occurrence: None)
  Receive Date: 20100308
  Receipt Date: 20100216
  Transmission Date: 20100710
  Serious: Yes (Other)
  Sender: FDA-Public Use
  Company Number: FR-BAYER-201015154GPV

PATIENT
  Age: 38 Year
  Sex: Female

DRUGS (1)
  1. YAZ [Suspect]
     Indication: CONTRACEPTION
     Route: 048
     Dates: start: 20091101, end: 20100122

REACTIONS (7)
  - ABDOMINAL PAIN [None]
  - ACNE [None]
  - BREAST PAIN [None]
  - BREAST SWELLING [None]
  - LYMPHADENOPATHY [None]
  - MENSTRUAL DISORDER [None]
  - MENSTRUATION IRREGULAR [None]
